FAERS Safety Report 5476518-X (Version None)
Quarter: 2007Q3

REPORT INFORMATION
  Report Type: 
  Country: None (occurrence: None)
  Receive Date: 20070924
  Receipt Date: 20070514
  Transmission Date: 20080115
  Serious: Yes (Other)
  Sender: FDA-Public Use
  Company Number: PHEH2007US07488

PATIENT

DRUGS (1)
  1. FEMARA [Suspect]

REACTIONS (2)
  - DEPRESSION [None]
  - DRUG INTOLERANCE [None]
